FAERS Safety Report 16164695 (Version 1)
Quarter: 2019Q2

REPORT INFORMATION
  Report Type: Spontaneous
  Country: TW (occurrence: TW)
  Receive Date: 20190405
  Receipt Date: 20190405
  Transmission Date: 20190711
  Serious: Yes (Death, Other)
  Sender: FDA-Public Use
  Company Number: TW-GLAXOSMITHKLINE-TW2019GSK060280

PATIENT
  Age: 75 Year
  Sex: Male

DRUGS (1)
  1. RANITIDINE. [Suspect]
     Active Substance: RANITIDINE
     Indication: PEPTIC ULCER
     Dosage: UNK
     Route: 042

REACTIONS (4)
  - Injection site pain [Unknown]
  - Irritability [Unknown]
  - Anaphylactic reaction [Fatal]
  - Respiratory failure [Fatal]
